FAERS Safety Report 4525892-7 (Version None)
Quarter: 2004Q4

REPORT INFORMATION
  Report Type: 
  Country: None (occurrence: None)
  Receive Date: 20041213
  Receipt Date: 20041202
  Transmission Date: 20050328
  Serious: Yes (Hospitalization)
  Sender: FDA-Public Use
  Company Number: PHBS2004IT16233

PATIENT
  Age: 79 Year
  Sex: Female

DRUGS (2)
  1. COUMADIN [Suspect]
     Indication: PULMONARY EMBOLISM
     Route: 048
     Dates: start: 20041128, end: 20041104
  2. TAREG [Suspect]
     Dosage: 80 MG/DAY
     Route: 048
     Dates: start: 20041028, end: 20041110

REACTIONS (1)
  - OESOPHAGEAL ULCER [None]
